FAERS Safety Report 4809910-4 (Version None)
Quarter: 2005Q4

REPORT INFORMATION
  Report Type: 
  Country: None (occurrence: None)
  Receive Date: 20051024
  Receipt Date: 20051024
  Transmission Date: 20060501
  Serious: Yes (Hospitalization, Other)
  Sender: FDA-Public Use
  Company Number: None

PATIENT
  Age: 6 Year
  Sex: Male
  Weight: 18.5975 kg

DRUGS (1)
  1. ABILIFY [Suspect]
     Indication: ATTENTION DEFICIT/HYPERACTIVITY DISORDER
     Dosage: 2.5MG   ONCE DAILY   PO
     Route: 048
     Dates: start: 20051018, end: 20051018

REACTIONS (3)
  - ASTHENIA [None]
  - CONVULSION [None]
  - DYSTONIA [None]
